FAERS Safety Report 18758155 (Version 2)
Quarter: 2021Q1

REPORT INFORMATION
  Report Type: Report from Study
  Country: None (occurrence: US)
  Receive Date: 20210119
  Receipt Date: 20210309
  Transmission Date: 20210419
  Serious: Yes (Hospitalization)
  Sender: FDA-Public Use
  Company Number: US-ABBVIE-20P-163-3554729-00

PATIENT
  Age: 77 Year
  Sex: Male

DRUGS (11)
  1. HU5F9 G4 [Concomitant]
     Active Substance: MAGROLIMAB
     Indication: ACUTE MYELOID LEUKAEMIA
     Dosage: CYCLE 1
     Route: 065
     Dates: start: 20200804, end: 20200824
  2. LOSARTAN. [Concomitant]
     Active Substance: LOSARTAN
     Indication: PRODUCT USED FOR UNKNOWN INDICATION
     Dates: end: 20201123
  3. FLUDROCORTISONE [Concomitant]
     Active Substance: FLUDROCORTISONE
     Indication: PRODUCT USED FOR UNKNOWN INDICATION
     Route: 065
     Dates: end: 20201125
  4. VENETOCLAX. [Suspect]
     Active Substance: VENETOCLAX
     Indication: ACUTE MYELOID LEUKAEMIA
     Dosage: CYCLE 1
     Route: 048
     Dates: start: 20200804, end: 20200824
  5. 5?AZACYTIDINE [Concomitant]
     Active Substance: AZACITIDINE
     Indication: ACUTE MYELOID LEUKAEMIA
     Dosage: CYCLE 1
     Route: 065
     Dates: start: 20200804, end: 20200810
  6. FUROSEMIDE. [Concomitant]
     Active Substance: FUROSEMIDE
     Indication: PRODUCT USED FOR UNKNOWN INDICATION
     Route: 065
     Dates: end: 20201118
  7. MAGNESIUM [Concomitant]
     Active Substance: MAGNESIUM
     Indication: PRODUCT USED FOR UNKNOWN INDICATION
     Dosage: }2
  8. VENETOCLAX. [Suspect]
     Active Substance: VENETOCLAX
     Route: 048
     Dates: start: 20201001, end: 20201022
  9. 5?AZACYTIDINE [Concomitant]
     Active Substance: AZACITIDINE
     Dosage: CYCLE 2 DAY 1: ON DAYS 1?7
     Route: 065
     Dates: start: 20201001, end: 20201007
  10. HU5F9 G4 [Concomitant]
     Active Substance: MAGROLIMAB
     Dosage: CYCLE 2 DAY 1ON DAYS 1?4, 15 MG/KG ON DAY 8, AND 30 MG/KG ON DAYS 11, 15 AND 22
     Route: 065
     Dates: start: 20201001, end: 20201022
  11. POTASSIUM [Concomitant]
     Active Substance: POTASSIUM
     Indication: PRODUCT USED FOR UNKNOWN INDICATION
     Dosage: 4

REACTIONS (2)
  - Brain abscess [Recovered/Resolved]
  - Bacteraemia [Recovered/Resolved]

NARRATIVE: CASE EVENT DATE: 20200831
